FAERS Safety Report 9351558 (Version 4)
Quarter: 2013Q4

REPORT INFORMATION
  Report Type: Other
  Country: JP (occurrence: JP)
  Receive Date: 20130617
  Receipt Date: 20131125
  Transmission Date: 20140711
  Serious: Yes (Hospitalization)
  Sender: FDA-Public Use
  Company Number: JP-BRISTOL-MYERS SQUIBB COMPANY-19014653

PATIENT
  Age: 68 Year
  Sex: Male
  Weight: 75 kg

DRUGS (9)
  1. ORENCIA [Suspect]
     Indication: RHEUMATOID ARTHRITIS
     Dosage: 7FEB12-IV DRIP INF,
     Route: 042
     Dates: start: 20110725, end: 20120207
  2. CYCLOSPORIN [Suspect]
     Indication: RHEUMATOID ARTHRITIS
     Route: 048
     Dates: start: 200905
  3. PREDONINE [Suspect]
     Indication: RHEUMATOID ARTHRITIS
     Dosage: 3MG
     Route: 048
     Dates: start: 2009
  4. PREDNISOLONE [Suspect]
     Indication: RHEUMATOID ARTHRITIS
     Route: 048
     Dates: start: 2009
  5. THYRADIN S [Concomitant]
     Indication: HYPOTHYROIDISM
     Dosage: POW
     Route: 048
     Dates: start: 2004
  6. ALFACALCIDOL [Concomitant]
     Indication: OSTEOPOROSIS
     Dosage: TAB
     Route: 048
     Dates: start: 2009
  7. AMLODIPINE [Concomitant]
     Indication: HYPERTENSION
     Dosage: AMLODIPINE OD TABS
     Route: 048
     Dates: start: 2004
  8. LISINOPRIL [Concomitant]
     Indication: HYPERTENSION
     Dosage: LISINOPRIL HYDRATE TABS
     Route: 048
     Dates: start: 2004
  9. NOVORAPID [Concomitant]
     Indication: DIABETES MELLITUS
     Dosage: 1 DF: 14-20-10 UNITS,INJ
     Route: 058
     Dates: start: 2010

REACTIONS (3)
  - Pneumothorax [Recovered/Resolved]
  - Pleural infection bacterial [Recovered/Resolved]
  - Pneumonia [Recovered/Resolved]
